FAERS Safety Report 7256245-9 (Version None)
Quarter: 2011Q1

REPORT INFORMATION
  Report Type: 
  Country: None (occurrence: None)
  Receive Date: 20110129
  Receipt Date: 20100614
  Transmission Date: 20110831
  Serious: Yes (Other)
  Sender: FDA-Public Use
  Company Number: US-ABBOTT-10P-163-0632659-00

PATIENT
  Sex: Female

DRUGS (10)
  1. HUMIRA [Suspect]
     Indication: PSORIATIC ARTHROPATHY
  2. CALCIUM [Concomitant]
     Indication: MINERAL SUPPLEMENTATION
  3. HUMIRA [Suspect]
     Indication: PSORIASIS
     Route: 058
     Dates: start: 20060901, end: 20070101
  4. ESTROVEN [Concomitant]
  5. ZOLOFT [Concomitant]
     Indication: DEPRESSION
  6. VICODIN [Concomitant]
     Indication: PSORIATIC ARTHROPATHY
  7. MULTI-VITAMIN [Concomitant]
     Indication: VITAMIN SUPPLEMENTATION
  8. TEMOVATE [Concomitant]
     Indication: PSORIASIS
     Route: 061
  9. DOVONEX [Concomitant]
     Indication: PSORIASIS
     Route: 061
  10. ADVIL PM [Concomitant]

REACTIONS (1)
  - NON-HODGKIN'S LYMPHOMA [None]
